FAERS Safety Report 20703365 (Version 1)
Quarter: 2022Q2

REPORT INFORMATION
  Report Type: Spontaneous
  Country: TG (occurrence: TG)
  Receive Date: 20220413
  Receipt Date: 20220413
  Transmission Date: 20220721
  Serious: Yes (Hospitalization, Other)
  Sender: FDA-Public Use
  Company Number: TG-ORGANON-O2204TGO000686

PATIENT
  Age: 14 Day
  Sex: Male

DRUGS (4)
  1. BETAMETHASONE SODIUM PHOSPHATE [Suspect]
     Active Substance: BETAMETHASONE SODIUM PHOSPHATE
     Indication: Neonatal infection
     Dosage: 4 MILLIGRAM
     Route: 030
  2. CEFTAZIDIME [Suspect]
     Active Substance: CEFTAZIDIME
     Indication: Neonatal infection
     Dosage: 1 GRAM
     Route: 030
  3. GENTAMICIN [Suspect]
     Active Substance: GENTAMICIN
     Indication: Neonatal infection
     Dosage: 80 MILLIGRAM
     Route: 030
  4. PHENOBARBITAL [Suspect]
     Active Substance: PHENOBARBITAL
     Indication: Neonatal infection
     Dosage: 40 MILLIGRAM
     Route: 030

REACTIONS (1)
  - Embolia cutis medicamentosa [Unknown]
